FAERS Safety Report 9604710 (Version 1)
Quarter: 2013Q4

REPORT INFORMATION
  Report Type: Spontaneous
  Country: US (occurrence: None)
  Receive Date: 20131008
  Receipt Date: 20131008
  Transmission Date: 20140711
  Serious: Yes (Other)
  Sender: FDA-Public Use
  Company Number: None

PATIENT
  Age: 82 Year
  Sex: Male
  Weight: 76.3 kg

DRUGS (1)
  1. 1.5% PHENYLEPHRINE/1% LIDOCAINE PF [Suspect]
     Indication: CATARACT OPERATION
     Dosage: 1 ML ONCE INTRACAMERAL INJECTION
     Route: 050
     Dates: start: 20130916

REACTIONS (2)
  - Toxic anterior segment syndrome [None]
  - Product quality issue [None]
